FAERS Safety Report 26196351 (Version 2)
Quarter: 2025Q4

REPORT INFORMATION
  Report Type: Spontaneous
  Country: US (occurrence: US)
  Receive Date: 20251224
  Receipt Date: 20251226
  Transmission Date: 20260117
  Serious: No
  Sender: BAXTER
  Company Number: US-BAXTER-2025BAX026208

PATIENT

DRUGS (1)
  1. GENTAMICIN [Suspect]
     Active Substance: GENTAMICIN
     Dosage: UNK
     Route: 065
     Dates: start: 20251207

REACTIONS (2)
  - Ill-defined disorder [Unknown]
  - Device alarm issue [Unknown]

NARRATIVE: CASE EVENT DATE: 20251207
